FAERS Safety Report 4598732-8 (Version None)
Quarter: 2005Q1

REPORT INFORMATION
  Report Type: 
  Country: None (occurrence: None)
  Receive Date: 20050304
  Receipt Date: 20041115
  Transmission Date: 20050727
  Serious: Yes (Other)
  Sender: FDA-Public Use
  Company Number: BE-GLAXOSMITHKLINE-B0357955A

PATIENT
  Age: 44 Year
  Sex: Male
  Weight: 87 kg

DRUGS (4)
  1. ZYBAN [Suspect]
     Dosage: 150MG SEE DOSAGE TEXT
     Route: 048
     Dates: start: 20041025, end: 20041115
  2. MICARDIS [Concomitant]
     Indication: HYPERTENSION
     Route: 048
     Dates: start: 20040601
  3. EMCONCOR [Concomitant]
     Indication: HYPERTENSION
     Route: 048
     Dates: start: 20030101
  4. LIPITOR [Concomitant]
     Route: 048
     Dates: start: 19990101

REACTIONS (4)
  - DRY MOUTH [None]
  - ECCHYMOSIS [None]
  - HAEMATOMA [None]
  - PSORIASIS [None]
